FAERS Safety Report 20688252 (Version 1)
Quarter: 2022Q2

REPORT INFORMATION
  Report Type: Spontaneous
  Country: US (occurrence: US)
  Receive Date: 20220408
  Receipt Date: 20220408
  Transmission Date: 20220721
  Serious: Yes (Hospitalization)
  Sender: FDA-Public Use
  Company Number: US-AMGEN-USASP2022060512

PATIENT
  Age: 71 Year
  Sex: Female

DRUGS (18)
  1. ENBREL [Suspect]
     Active Substance: ETANERCEPT
     Indication: Rheumatoid arthritis
     Dosage: 50 MILLIGRAM, QWK
     Route: 058
  2. KLOR-CON [Concomitant]
     Active Substance: POTASSIUM CHLORIDE
     Dosage: 20 MILLIEQUIVALENT
     Route: 065
  3. AMITRIPTYLINE [Concomitant]
     Active Substance: AMITRIPTYLINE
     Dosage: 25 MILLIGRAM
     Route: 065
  4. METFORMIN [Concomitant]
     Active Substance: METFORMIN HYDROCHLORIDE
     Dosage: 1000 MILLIGRAM
     Route: 065
  5. AMITRIPTYLINE [Concomitant]
     Active Substance: AMITRIPTYLINE
     Dosage: UNK
     Route: 065
  6. METFORMIN HYDROCHLORIDE [Concomitant]
     Active Substance: METFORMIN HYDROCHLORIDE
     Dosage: UNK
     Route: 065
  7. CIPROFLOXACIN [Concomitant]
     Active Substance: CIPROFLOXACIN
     Dosage: 500 MILLIGRAM
     Route: 065
  8. ATROPINE\DIPHENOXYLATE [Concomitant]
     Active Substance: ATROPINE\DIPHENOXYLATE
     Dosage: 2.5 MILLIGRAM
     Route: 065
  9. DULOXETINE [Concomitant]
     Active Substance: DULOXETINE
     Dosage: 60 MILLIGRAM
     Route: 065
  10. ESOMEPRAZOLE [Concomitant]
     Active Substance: ESOMEPRAZOLE
     Dosage: 40 MILLIGRAM
     Route: 065
  11. HYDROCHLOROTHIAZIDE [Concomitant]
     Active Substance: HYDROCHLOROTHIAZIDE
     Dosage: 25 MILLIGRAM
     Route: 065
  12. IBANDRONATE SODIUM [Concomitant]
     Active Substance: IBANDRONATE SODIUM
     Dosage: 150 MILLIGRAM
     Route: 065
  13. LATANOPROST [Concomitant]
     Active Substance: LATANOPROST
     Dosage: UNK
     Route: 065
  14. LYRICA [Concomitant]
     Active Substance: PREGABALIN
     Dosage: 25 MILLIGRAM
     Route: 065
  15. SYNTHROID [Concomitant]
     Active Substance: LEVOTHYROXINE SODIUM
     Dosage: 88 MICROGRAM
     Route: 065
  16. TRAMADOL HCL [Concomitant]
     Active Substance: TRAMADOL HYDROCHLORIDE
     Dosage: 50 MILLIGRAM
     Route: 065
  17. VALSARTAN [Concomitant]
     Active Substance: VALSARTAN
     Dosage: 160 MILLIGRAM
     Route: 065
  18. CHOLECALCIFEROL [Concomitant]
     Active Substance: CHOLECALCIFEROL
     Dosage: 50000 UNIT
     Route: 065

REACTIONS (1)
  - Hospitalisation [Unknown]

NARRATIVE: CASE EVENT DATE: 20220201
